FAERS Safety Report 5796358-1 (Version None)
Quarter: 2008Q2

REPORT INFORMATION
  Report Type: 
  Country: None (occurrence: None)
  Receive Date: 20080618
  Receipt Date: 20070810
  Transmission Date: 20081010
  Serious: Yes (Other)
  Sender: FDA-Public Use
  Company Number: 200714733US

PATIENT
  Age: 72 Year
  Sex: Male

DRUGS (17)
  1. LANTUS [Suspect]
     Indication: TYPE 2 DIABETES MELLITUS
     Dosage: 35 U
  2. LANTUS [Suspect]
     Indication: TYPE 2 DIABETES MELLITUS
     Dates: start: 20070101
  3. LANTUS [Concomitant]
     Indication: TYPE 2 DIABETES MELLITUS
     Dosage: 10-15 AND 15-20 U HS
     Dates: start: 20070101
  4. OPTICLIK [Suspect]
     Indication: TYPE 2 DIABETES MELLITUS
  5. STARLIX [Concomitant]
  6. PIOGLITAZONE HYDROCHLORIDE (ACTOSE) [Concomitant]
  7. GLIPIZIDE [Concomitant]
  8. LIPITOR [Concomitant]
  9. ZAROXOLYN [Concomitant]
  10. ASPIRIN [Concomitant]
  11. CARVEDILOL [Concomitant]
  12. POTASSIUM CHLORIDE [Concomitant]
  13. CALCITRIOL [Concomitant]
  14. ROPINIROLE HYDROCHLORIDE (REQUIP) [Concomitant]
  15. JANUVIA [Concomitant]
  16. ASCORBIC ACID [Concomitant]
  17. VITAMINS NOS (MVI) [Concomitant]

REACTIONS (2)
  - FATIGUE [None]
  - HYPOGLYCAEMIA [None]
